FAERS Safety Report 8144021-4 (Version None)
Quarter: 2012Q1

REPORT INFORMATION
  Report Type: 
  Country: None (occurrence: None)
  Receive Date: 20120217
  Receipt Date: 20120217
  Transmission Date: 20120608
  Serious: Yes (Hospitalization)
  Sender: FDA-Public Use
  Company Number: None

PATIENT
  Age: 40 Year
  Sex: Male
  Weight: 90.718 kg

DRUGS (4)
  1. PROPRANOLOL [Concomitant]
  2. HYDROCODONE 10/APAP 650 [Concomitant]
  3. RISPERIDONE [Suspect]
     Indication: POST CONCUSSION SYNDROME
     Dates: start: 20110627, end: 20110711
  4. CITALOPRAM HYDROBROMIDE [Concomitant]

REACTIONS (7)
  - ABNORMAL BEHAVIOUR [None]
  - PERSONALITY CHANGE [None]
  - AFFECTIVE DISORDER [None]
  - INSOMNIA [None]
  - IRRITABILITY [None]
  - AGITATION [None]
  - AGGRESSION [None]
